FAERS Safety Report 6744580-X (Version None)
Quarter: 2010Q2

REPORT INFORMATION
  Report Type: 
  Country: None (occurrence: None)
  Receive Date: 20100527
  Receipt Date: 20100519
  Transmission Date: 20101027
  Serious: Yes (Death, Other)
  Sender: FDA-Public Use
  Company Number: PHHY2010US33750

PATIENT
  Age: 15 Year
  Sex: Male

DRUGS (9)
  1. CYCLOSPORINE [Suspect]
     Indication: STEM CELL TRANSPLANT
  2. CYCLOSPORINE [Suspect]
     Indication: PROPHYLAXIS AGAINST GRAFT VERSUS HOST DISEASE
  3. PREDNISONE TAB [Suspect]
     Indication: STEM CELL TRANSPLANT
  4. PREDNISONE TAB [Suspect]
     Indication: PROPHYLAXIS AGAINST GRAFT VERSUS HOST DISEASE
  5. NEUPOGEN [Concomitant]
     Route: 058
  6. PHENYTOIN [Concomitant]
     Indication: CONVULSION PROPHYLAXIS
  7. BUSULFEX [Concomitant]
  8. ANTITHYMOCYTE IMMUNOGLOBULIN [Concomitant]
  9. CYCLOPHOSPHAMIDE [Concomitant]
     Dosage: 50 MG/KG

REACTIONS (9)
  - CONVULSION [None]
  - DIABETES INSIPIDUS [None]
  - FAILURE TO THRIVE [None]
  - HAEMORRHAGE INTRACRANIAL [None]
  - INFARCTION [None]
  - MOYAMOYA DISEASE [None]
  - MULTI-ORGAN FAILURE [None]
  - NEUROLOGICAL DECOMPENSATION [None]
  - SEPSIS [None]
